FAERS Safety Report 4807799-0 (Version None)
Quarter: 2005Q4

REPORT INFORMATION
  Report Type: 
  Country: None (occurrence: None)
  Receive Date: 20051020
  Receipt Date: 20051006
  Transmission Date: 20060501
  Serious: Yes (Other)
  Sender: FDA-Public Use
  Company Number: 2005BH002257

PATIENT
  Sex: Male

DRUGS (2)
  1. EXTRANEAL [Suspect]
  2. BLOOD GLUCOSE MONITOR [Concomitant]

REACTIONS (2)
  - HYPOGLYCAEMIA [None]
  - TREATMENT NONCOMPLIANCE [None]
